FAERS Safety Report 25486808 (Version 1)
Quarter: 2025Q2

REPORT INFORMATION
  Report Type: Spontaneous
  Country: GB (occurrence: GB)
  Receive Date: 20250627
  Receipt Date: 20250627
  Transmission Date: 20250716
  Serious: Yes (Other)
  Sender: DR REDDYS
  Company Number: None

PATIENT
  Age: 38 Year
  Sex: Female

DRUGS (1)
  1. ATOMOXETINE [Suspect]
     Active Substance: ATOMOXETINE
     Indication: Attention deficit hyperactivity disorder
     Dosage: 40MG ONCE A DAY
     Dates: start: 20250217, end: 20250301

REACTIONS (3)
  - Depression [Recovered/Resolved]
  - Completed suicide [Recovered/Resolved]
  - Anxiety [Recovered/Resolved]
